FAERS Safety Report 26191617 (Version 1)
Quarter: 2025Q4

REPORT INFORMATION
  Report Type: Spontaneous
  Country: US (occurrence: US)
  Receive Date: 20251223
  Receipt Date: 20251223
  Transmission Date: 20260118
  Serious: Yes (Other)
  Sender: MERCK SHARP & DOHME LLC
  Company Number: US-009507513-2361961

PATIENT
  Sex: Male

DRUGS (7)
  1. WINREVAIR [Suspect]
     Active Substance: SOTATERCEPT-CSRK
     Indication: Pulmonary arterial hypertension
     Route: 058
     Dates: start: 202405
  2. WINREVAIR [Suspect]
     Active Substance: SOTATERCEPT-CSRK
  3. WINREVAIR [Suspect]
     Active Substance: SOTATERCEPT-CSRK
  4. WINREVAIR [Suspect]
     Active Substance: SOTATERCEPT-CSRK
  5. TADALAFIL [Concomitant]
     Active Substance: TADALAFIL
  6. REMODULIN [Concomitant]
     Active Substance: TREPROSTINIL
  7. OPSUMIT [Concomitant]
     Active Substance: MACITENTAN

REACTIONS (7)
  - Bacteraemia [Recovering/Resolving]
  - Cardiac failure congestive [Recovering/Resolving]
  - Peripheral swelling [Recovering/Resolving]
  - Weight fluctuation [Recovering/Resolving]
  - Cough [Recovering/Resolving]
  - Device related infection [Recovering/Resolving]
  - Pain in extremity [Recovering/Resolving]

NARRATIVE: CASE EVENT DATE: 20250101
